FAERS Safety Report 9100358 (Version 1)
Quarter: 2013Q1

REPORT INFORMATION
  Report Type: Spontaneous
  Country: US (occurrence: US)
  Receive Date: 20130214
  Receipt Date: 20130214
  Transmission Date: 20140127
  Serious: Yes (Other)
  Sender: FDA-Public Use
  Company Number: US-PFIZER INC-2013056517

PATIENT
  Age: 66 Year
  Sex: Female

DRUGS (4)
  1. CELEBREX [Suspect]
     Indication: OSTEOARTHRITIS
     Dosage: UNK
  2. CELEBREX [Suspect]
     Indication: SPINAL COLUMN STENOSIS
  3. ASPIRIN [Suspect]
     Indication: CARDIOVASCULAR EVENT PROPHYLAXIS
     Dosage: LOW DOSE, UNK
  4. NEXIUM [Suspect]
     Dosage: UNK

REACTIONS (5)
  - Ulcer haemorrhage [Unknown]
  - Haemoglobin decreased [Unknown]
  - Chest pain [Unknown]
  - Dyspnoea [Unknown]
  - Fatigue [Unknown]
